FAERS Safety Report 8776234 (Version 1)
Quarter: 2012Q4

REPORT INFORMATION
  Report Type: 
  Country: US (occurrence: US)
  Receive Date: 20120910
  Receipt Date: 20120910
  Transmission Date: 20130627
  Serious: Yes (Hospitalization, Other)
  Sender: FDA-Public Use
  Company Number: US-PFIZER INC-2012221386

PATIENT
  Age: 68 Year
  Sex: Female
  Weight: 78.01 kg

DRUGS (10)
  1. NEURONTIN [Suspect]
     Indication: PARAESTHESIA
     Dosage: 600 mg, 3x/day
     Dates: start: 2008
  2. NEURONTIN [Suspect]
     Indication: SYNOVIAL CYST
     Dosage: 600mg four to five times a day
     Dates: end: 2012
  3. GABAPENTIN [Suspect]
     Indication: SYNOVIAL CYST
     Dosage: UNK
     Dates: start: 2012
  4. SPIRIVA [Suspect]
     Indication: CHRONIC OBSTRUCTIVE PULMONARY DISEASE
     Dosage: UNK
  5. SALBUTAMOL SULFATE [Suspect]
     Dosage: UNK
  6. SINGULAIR [Suspect]
     Indication: CHRONIC OBSTRUCTIVE PULMONARY DISEASE
     Dosage: 10 mg, UNK
  7. ADVAIR [Suspect]
     Indication: CHRONIC OBSTRUCTIVE PULMONARY DISEASE
     Dosage: UNK
  8. BUDESONIDE [Suspect]
     Dosage: UNK
  9. LANSOPRAZOLE [Concomitant]
     Indication: GASTROOESOPHAGEAL REFLUX DISEASE
     Dosage: 20 mg, as needed
  10. NAPROXEN [Concomitant]
     Indication: OSTEOPOROSIS
     Dosage: 500 mg, daily

REACTIONS (9)
  - Asthma [Unknown]
  - Herpes zoster [Not Recovered/Not Resolved]
  - Drug ineffective [Unknown]
  - Paraesthesia [Unknown]
  - Pruritus [Unknown]
  - Heart rate increased [Unknown]
  - Intentional drug misuse [Unknown]
  - Erythema [Unknown]
  - Nervousness [Unknown]
